FAERS Safety Report 8098180-2 (Version None)
Quarter: 2012Q1

REPORT INFORMATION
  Report Type: 
  Country: None (occurrence: None)
  Receive Date: 20120128
  Receipt Date: 20110809
  Transmission Date: 20120608
  Serious: No
  Sender: FDA-Public Use
  Company Number: US-ABBOTT-11P-163-0845086-00

PATIENT
  Age: 57 Year
  Sex: Female

DRUGS (13)
  1. PR SOMETHING INHALER [Concomitant]
     Indication: HYPERSENSITIVITY
  2. PREMPRO [Concomitant]
     Indication: OESTROGEN REPLACEMENT THERAPY
     Dosage: 06.25/2.5 MG EVERY DAY
  3. SINGULAIR [Concomitant]
     Indication: ASTHMA
     Dosage: DAILY
  4. NASACORT [Concomitant]
     Indication: HYPERSENSITIVITY
  5. PR SOMETHING INHALER [Concomitant]
     Indication: ASTHMA
  6. ZYRTEC [Concomitant]
     Indication: ASTHMA
     Dosage: NIGHTLY
  7. HUMIRA [Suspect]
     Dosage: WEEKLY
  8. ZYRTEC [Concomitant]
     Indication: HYPERSENSITIVITY
  9. NASACORT [Concomitant]
     Indication: ASTHMA
     Dosage: EVERY NIGHT
  10. MOBIC [Concomitant]
     Indication: PAIN
     Dosage: PER DAY
  11. HUMIRA [Suspect]
     Indication: PSORIASIS
     Dates: start: 20110101
  12. SINGULAIR [Concomitant]
     Indication: HYPERSENSITIVITY
  13. FOSAMAX [Concomitant]
     Indication: OSTEOPOROSIS
     Dosage: ONCE A WEEK

REACTIONS (5)
  - ARTHRALGIA [None]
  - INJECTION SITE PAIN [None]
  - PSORIASIS [None]
  - RESTLESS LEGS SYNDROME [None]
  - DYSPEPSIA [None]
